FAERS Safety Report 19042216 (Version 1)
Quarter: 2021Q1

REPORT INFORMATION
  Report Type: Spontaneous
  Country: IN (occurrence: IN)
  Receive Date: 20210323
  Receipt Date: 20210323
  Transmission Date: 20210420
  Serious: Yes (Other)
  Sender: FDA-Public Use
  Company Number: IN-CIPLA LTD.-2021IN01988

PATIENT

DRUGS (1)
  1. ZOLMIST [Suspect]
     Active Substance: ZOLMITRIPTAN
     Indication: MIGRAINE
     Dosage: UNK
     Route: 065
     Dates: start: 20210309, end: 20210310

REACTIONS (3)
  - Product delivery mechanism issue [Unknown]
  - Migraine [Not Recovered/Not Resolved]
  - Product availability issue [Unknown]
